FAERS Safety Report 19459464 (Version 1)
Quarter: 2021Q2

REPORT INFORMATION
  Report Type: Spontaneous
  Country: JP (occurrence: JP)
  Receive Date: 20210624
  Receipt Date: 20210624
  Transmission Date: 20210717
  Serious: Yes (Other)
  Sender: FDA-Public Use
  Company Number: JP-AMNEAL PHARMACEUTICALS-2021-AMRX-02425

PATIENT

DRUGS (1)
  1. METHITEST [Suspect]
     Active Substance: METHYLTESTOSTERONE
     Indication: TRANSGENDER HORMONAL THERAPY
     Dosage: UNK, INJECTION
     Route: 065

REACTIONS (1)
  - Chronic inflammatory demyelinating polyradiculoneuropathy [Recovered/Resolved]
